FAERS Safety Report 10555101 (Version 6)
Quarter: 2016Q1

REPORT INFORMATION
  Report Type: Spontaneous
  Country: US (occurrence: US)
  Receive Date: 20141030
  Receipt Date: 20160226
  Transmission Date: 20160525
  Serious: Yes (Hospitalization, Other)
  Sender: FDA-Public Use
  Company Number: US-009507513-1410USA015396

PATIENT
  Sex: Female

DRUGS (5)
  1. RECLAST [Suspect]
     Active Substance: ZOLEDRONIC ACID
     Indication: OSTEOPOROSIS
     Dosage: UNK, ONCE PER YEAR
     Route: 041
     Dates: start: 2013
  2. ACTONEL [Suspect]
     Active Substance: RISEDRONATE SODIUM
     Indication: OSTEOPOROSIS
     Dosage: UNK, UNKNOWN
     Route: 065
     Dates: start: 2010, end: 2010
  3. ALENDRONATE SODIUM. [Suspect]
     Active Substance: ALENDRONATE SODIUM
     Indication: OSTEOPOROSIS
     Dosage: 70 MG, QW
     Route: 048
     Dates: start: 20101108, end: 2011
  4. BONIVA [Suspect]
     Active Substance: IBANDRONATE SODIUM
     Indication: OSTEOPOROSIS
     Dosage: 150 MG, QW
     Route: 048
     Dates: start: 20070627, end: 20091020
  5. FOSAMAX [Suspect]
     Active Substance: ALENDRONATE SODIUM
     Indication: OSTEOPOROSIS
     Dosage: 70 MG, QW
     Route: 048
     Dates: start: 2006, end: 2007

REACTIONS (39)
  - Supraventricular tachycardia [Recovered/Resolved]
  - Blood cholesterol increased [Unknown]
  - Anal fistula [Unknown]
  - Appendix disorder [Unknown]
  - Hyponatraemia [Recovered/Resolved]
  - Hyperlipidaemia [Unknown]
  - Drug hypersensitivity [Unknown]
  - Haematoma [Unknown]
  - Cholelithiasis [Unknown]
  - Pain in extremity [Recovering/Resolving]
  - Adverse drug reaction [Unknown]
  - Diarrhoea [Unknown]
  - Head injury [Unknown]
  - Ecchymosis [Unknown]
  - Syncope [Unknown]
  - Depression [Unknown]
  - Haemorrhoids [Unknown]
  - Gastrooesophageal reflux disease [Unknown]
  - Hypertension [Unknown]
  - Arthrofibrosis [Unknown]
  - Atelectasis [Unknown]
  - Generalised anxiety disorder [Unknown]
  - Seasonal affective disorder [Unknown]
  - Blood albumin decreased [Unknown]
  - Schizoaffective disorder [Unknown]
  - Anaemia postoperative [Unknown]
  - Biliary dilatation [Unknown]
  - Blood pressure decreased [Unknown]
  - Hypothyroidism [Unknown]
  - Uterine disorder [Unknown]
  - Constipation [Unknown]
  - Blood calcium decreased [Unknown]
  - Oedema peripheral [Unknown]
  - Femur fracture [Recovering/Resolving]
  - Dyslipidaemia [Unknown]
  - Rubber sensitivity [Unknown]
  - Electrocardiogram ST-T change [Unknown]
  - Protein total decreased [Unknown]
  - Blood folate decreased [Unknown]

NARRATIVE: CASE EVENT DATE: 2007
